FAERS Safety Report 7527338-3 (Version None)
Quarter: 2011Q2

REPORT INFORMATION
  Report Type: 
  Country: None (occurrence: None)
  Receive Date: 20110602
  Receipt Date: 20110521
  Transmission Date: 20111010
  Serious: Yes (Death, Hospitalization)
  Sender: FDA-Public Use
  Company Number: JPI-P-001390

PATIENT
  Age: 79 Year
  Sex: Male

DRUGS (2)
  1. XYREM [Suspect]
     Indication: DYSSOMNIA
     Dosage: 7 GM (3.5 GM, 2 IN 1 D), ORAL (UNSPECIFIED DOSE CHANGE), ORAL 4GM (2 GM, 2 IN 1 D), ORAL
     Route: 048
     Dates: end: 20070428
  2. XYREM [Suspect]
     Indication: DYSSOMNIA
     Dosage: 7 GM (3.5 GM, 2 IN 1 D), ORAL (UNSPECIFIED DOSE CHANGE), ORAL 4GM (2 GM, 2 IN 1 D), ORAL
     Route: 048
     Dates: start: 20050101

REACTIONS (4)
  - FALL [None]
  - HIP FRACTURE [None]
  - UPPER GASTROINTESTINAL HAEMORRHAGE [None]
  - POST PROCEDURAL COMPLICATION [None]
